FAERS Safety Report 4673143-5 (Version None)
Quarter: 2005Q2

REPORT INFORMATION
  Report Type: 
  Country: None (occurrence: None)
  Receive Date: 20050525
  Receipt Date: 20040729
  Transmission Date: 20051028
  Serious: No
  Sender: FDA-Public Use
  Company Number: US-GLAXOSMITHKLINE-A0520315A

PATIENT
  Age: 48 Year
  Sex: Female

DRUGS (2)
  1. BACTROBAN [Suspect]
     Indication: ILL-DEFINED DISORDER
     Route: 061
     Dates: start: 20040401, end: 20040401
  2. NO CONCURRENT MEDICATION [Concomitant]

REACTIONS (3)
  - EMPYEMA DRAINAGE [None]
  - RASH MACULAR [None]
  - SWELLING [None]
